FAERS Safety Report 8153639-4 (Version None)
Quarter: 2012Q1

REPORT INFORMATION
  Report Type: 
  Country: None (occurrence: None)
  Receive Date: 20120221
  Receipt Date: 20120206
  Transmission Date: 20120608
  Serious: Yes (Other)
  Sender: FDA-Public Use
  Company Number: TR-WATSON-2012-02835

PATIENT
  Age: 39 Year
  Sex: Female

DRUGS (1)
  1. VALPROATE SODIUM [Suspect]
     Indication: SCHIZOPHRENIA, UNDIFFERENTIATED TYPE
     Dosage: 1500 MG, DAILY
     Route: 065

REACTIONS (3)
  - RESTLESSNESS [None]
  - LEUKOCYTOCLASTIC VASCULITIS [None]
  - IMPULSIVE BEHAVIOUR [None]
